FAERS Safety Report 14695754 (Version 1)
Quarter: 2018Q1

REPORT INFORMATION
  Report Type: Spontaneous
  Country: CA (occurrence: CA)
  Receive Date: 20180329
  Receipt Date: 20180329
  Transmission Date: 20180509
  Serious: Yes (Hospitalization, Other)
  Sender: FDA-Public Use
  Company Number: CA-BAUSCH-BL-2018-007274

PATIENT
  Age: 24 Hour
  Sex: Male

DRUGS (1)
  1. ERYTHROMYCIN. [Suspect]
     Active Substance: ERYTHROMYCIN
     Indication: PROPHYLAXIS
     Route: 061

REACTIONS (5)
  - Eyelid rash [Recovered/Resolved with Sequelae]
  - Eyelid oedema [Recovering/Resolving]
  - Erythema [Recovering/Resolving]
  - Rash pustular [Recovered/Resolved with Sequelae]
  - Skin reaction [Recovered/Resolved with Sequelae]
